FAERS Safety Report 21572740 (Version 1)
Quarter: 2022Q4

REPORT INFORMATION
  Report Type: Spontaneous
  Country: US (occurrence: None)
  Receive Date: 20221108
  Receipt Date: 20221108
  Transmission Date: 20230113
  Serious: Yes (Hospitalization)
  Sender: FDA-Public Use
  Company Number: None

PATIENT
  Age: 81 Year
  Sex: Female
  Weight: 65 kg

DRUGS (1)
  1. APIXABAN [Suspect]
     Active Substance: APIXABAN
     Indication: Atrial fibrillation
     Dosage: 2.5 MB BID PO?
     Route: 048
     Dates: start: 20211123, end: 20220301

REACTIONS (3)
  - Gastrointestinal haemorrhage [None]
  - Gastrointestinal vascular malformation [None]
  - Anaemia [None]

NARRATIVE: CASE EVENT DATE: 20220128
